FAERS Safety Report 9080205 (Version 2)
Quarter: 2013Q2

REPORT INFORMATION
  Report Type: Report from Study
  Country: US (occurrence: US)
  Receive Date: 20130130
  Receipt Date: 20130612
  Transmission Date: 20140414
  Serious: Yes (Other)
  Sender: FDA-Public Use
  Company Number: US-VERTEX PHARMACEUTICALS INC.-2013-001306

PATIENT
  Age: 54 Year
  Sex: Female
  Weight: 72.56 kg

DRUGS (9)
  1. VX-950 (TELAPREVIR) [Suspect]
     Indication: HEPATITIS C
     Dosage: 750 MG, TID
     Route: 048
     Dates: start: 20121021, end: 20130112
  2. RIBAVIRIN [Suspect]
     Indication: HEPATITIS C
     Dosage: 1000 MG, QD (DIVIDED DOSES)
     Dates: start: 20121021
  3. RIBAVIRIN [Suspect]
     Dosage: 500 MG, QD
     Route: 048
  4. RIBAVIRIN [Suspect]
     Dosage: UNK
     Dates: end: 20130406
  5. PEGASYS [Suspect]
     Indication: HEPATITIS C
     Dosage: 180 ?G, QW
     Route: 058
     Dates: start: 20121021, end: 20130331
  6. BENADRYL [Concomitant]
     Dosage: 25 MG, UNK
  7. LEVOTHYROXINE [Concomitant]
     Dosage: 50 ?G, UNK
  8. MULTIVITAMIN [Concomitant]
  9. FOLIC ACID [Concomitant]

REACTIONS (6)
  - Anaemia [Recovered/Resolved]
  - Weight decreased [Unknown]
  - Rash [Not Recovered/Not Resolved]
  - Pigmentation disorder [Not Recovered/Not Resolved]
  - Pruritus [Not Recovered/Not Resolved]
  - Nausea [Unknown]
